FAERS Safety Report 9118295 (Version 1)
Quarter: 2013Q1

REPORT INFORMATION
  Report Type: Spontaneous
  Country: US (occurrence: None)
  Receive Date: 20130221
  Receipt Date: 20130221
  Transmission Date: 20140127
  Serious: Yes (Other)
  Sender: FDA-Public Use
  Company Number: None

PATIENT
  Age: 76 Year
  Sex: Female
  Weight: 55.79 kg

DRUGS (1)
  1. BENZTROPINE MESYLATE, QUALITEST [Suspect]
     Indication: PERSONALITY DISORDER
     Dates: start: 201212

REACTIONS (11)
  - Angle closure glaucoma [None]
  - Eye infection [None]
  - Dizziness [None]
  - Muscle disorder [None]
  - Affective disorder [None]
  - Anxiety [None]
  - Psychotic disorder [None]
  - Urinary incontinence [None]
  - Dental caries [None]
  - Gingival disorder [None]
  - Transient ischaemic attack [None]
